FAERS Safety Report 4744351-X (Version None)
Quarter: 2005Q3

REPORT INFORMATION
  Report Type: 
  Country: None (occurrence: None)
  Receive Date: 20050812
  Receipt Date: 20050518
  Transmission Date: 20060218
  Serious: Yes (Hospitalization)
  Sender: FDA-Public Use
  Company Number: US-MERCK-0505USA02270

PATIENT
  Age: 46 Year
  Sex: Male
  Weight: 102 kg

DRUGS (6)
  1. VIOXX [Suspect]
     Indication: BACK PAIN
     Route: 048
     Dates: start: 20000101, end: 20020101
  2. VIOXX [Suspect]
     Route: 048
     Dates: start: 20030101, end: 20040101
  3. OXYCONTIN [Concomitant]
     Route: 065
     Dates: start: 20000101, end: 20050501
  4. OXYCODONE [Concomitant]
     Route: 065
     Dates: start: 19960101
  5. MORPHINE [Concomitant]
     Route: 065
     Dates: start: 20000101, end: 20050101
  6. DURAGESIC-100 [Concomitant]
     Route: 065
     Dates: start: 20030101, end: 20050501

REACTIONS (5)
  - ANEURYSM [None]
  - INFECTION [None]
  - NEURALGIA [None]
  - PRESCRIBED OVERDOSE [None]
  - THROMBOSIS [None]
